FAERS Safety Report 5868539-X (Version None)
Quarter: 2008Q3

REPORT INFORMATION
  Report Type: 
  Country: None (occurrence: None)
  Receive Date: 20080828
  Receipt Date: 20080820
  Transmission Date: 20090109
  Serious: Yes (Other)
  Sender: FDA-Public Use
  Company Number: CLOF-1000268

PATIENT

DRUGS (3)
  1. CLOFARABINE (CLOFARABINE) SOLUTION FOR INFUSION [Suspect]
     Indication: ACUTE LEUKAEMIA
     Dosage: 20 MG/M2, QDX5, INTRAVENOUS; 30 MG/M2, QDX5, INTRAVENOUS; 40 MG/M2, QDX5, INTRAVENOUS
     Route: 042
  2. BUSULFAN (BUSULFAN) [Suspect]
     Indication: ACUTE LEUKAEMIA
     Dosage: 3.2 MG/KG, QD, INTRAVENOUS
     Route: 042
  3. DEXAMETHASONE TAB [Concomitant]

REACTIONS (8)
  - ASCITES [None]
  - CONVULSION [None]
  - DRUG HYPERSENSITIVITY [None]
  - GRAFT VERSUS HOST DISEASE [None]
  - HEPATIC ENZYME ABNORMAL [None]
  - HYPERTENSION [None]
  - HYPOXIA [None]
  - VENOOCCLUSIVE DISEASE [None]
